FAERS Safety Report 9228179 (Version 4)
Quarter: 2015Q2

REPORT INFORMATION
  Report Type: Spontaneous
  Country: US (occurrence: US)
  Receive Date: 20130412
  Receipt Date: 20150521
  Transmission Date: 20150821
  Serious: Yes (Hospitalization, Other)
  Sender: FDA-Public Use
  Company Number: US-BAYER-2013-045482

PATIENT
  Age: 28 Year
  Sex: Female
  Weight: 58.96 kg

DRUGS (5)
  1. YAZ [Suspect]
     Active Substance: DROSPIRENONE\ETHINYL ESTRADIOL
     Dosage: UNK
     Dates: start: 2009, end: 2010
  2. YASMIN [Suspect]
     Active Substance: DROSPIRENONE\ETHINYL ESTRADIOL
     Dosage: UNK
     Dates: start: 2009, end: 2010
  3. OCELLA [Suspect]
     Active Substance: DROSPIRENONE\ETHINYL ESTRADIOL
     Dosage: UNK
     Dates: start: 2010, end: 2011
  4. MICRONOR [Concomitant]
     Active Substance: NORETHINDRONE
  5. METRONIDAZOLE. [Concomitant]
     Active Substance: METRONIDAZOLE
     Dosage: 500 MG, UNK

REACTIONS (11)
  - Vena cava thrombosis [None]
  - Emotional distress [None]
  - Anxiety [None]
  - Pain [None]
  - Ovarian vein thrombosis [Recovered/Resolved]
  - Deep vein thrombosis [None]
  - Injury [None]
  - Pain [None]
  - Abdominal pain [None]
  - General physical health deterioration [None]
  - Tachycardia [None]

NARRATIVE: CASE EVENT DATE: 201009
